FAERS Safety Report 20683887 (Version 1)
Quarter: 2022Q2

REPORT INFORMATION
  Report Type: Spontaneous
  Country: CO (occurrence: CO)
  Receive Date: 20220407
  Receipt Date: 20220407
  Transmission Date: 20220721
  Serious: No
  Sender: FDA-Public Use
  Company Number: CO-PFIZER INC-202200390003

PATIENT
  Age: 9 Year
  Sex: Male

DRUGS (1)
  1. GENOTROPIN [Suspect]
     Active Substance: SOMATROPIN
     Dosage: UNSPECIFIED FREQUENCY
     Route: 058

REACTIONS (5)
  - Device physical property issue [Unknown]
  - Drug dose omission by device [Unknown]
  - Device failure [Unknown]
  - Device leakage [Unknown]
  - Incorrect dose administered by device [Unknown]
